FAERS Safety Report 6261105-6 (Version None)
Quarter: 2009Q3

REPORT INFORMATION
  Report Type: 
  Country: None (occurrence: None)
  Receive Date: 20090707
  Receipt Date: 20090624
  Transmission Date: 20100115
  Serious: Yes (Hospitalization, Other)
  Sender: FDA-Public Use
  Company Number: 2009AP002560

PATIENT
  Age: 84 Year
  Sex: Female

DRUGS (11)
  1. DILTIAZEM HCL [Suspect]
     Indication: CARDIAC DISORDER
     Dosage: 120 MG; QD; PO
     Route: 048
  2. METOPROLOL TARTRATE [Suspect]
     Indication: CARDIAC DISORDER
     Dosage: 25 MG
  3. DONEPEZIL HCL [Suspect]
     Dosage: 5 MG; BID
  4. METHYLPHENIDATE HCL [Suspect]
     Indication: FATIGUE
     Dosage: 5 MG; QD
  5. SIMVASTATIN [Concomitant]
  6. GEMFIBROZIL [Concomitant]
  7. SPIRONOLACTONE [Concomitant]
  8. LEVOTHYROXINE SODIUM [Concomitant]
  9. ESTROGENS [Concomitant]
  10. ALPRAZOLAM [Concomitant]
  11. MEMANTINE [Concomitant]

REACTIONS (11)
  - ARTERIOSPASM CORONARY [None]
  - CARDIOGENIC SHOCK [None]
  - DRUG WITHDRAWAL SYNDROME [None]
  - FLUSHING [None]
  - HYPERHIDROSIS [None]
  - HYPOTENSION [None]
  - MYOCARDIAL INFARCTION [None]
  - PULMONARY OEDEMA [None]
  - RESPIRATORY DISORDER [None]
  - SINUS BRADYCARDIA [None]
  - SOCIAL AVOIDANT BEHAVIOUR [None]
